FAERS Safety Report 5832632-8 (Version None)
Quarter: 2008Q3

REPORT INFORMATION
  Report Type: 
  Country: None (occurrence: None)
  Receive Date: 20080730
  Receipt Date: 20080717
  Transmission Date: 20090109
  Serious: Yes (Hospitalization)
  Sender: FDA-Public Use
  Company Number: 8034623

PATIENT
  Age: 37 Year
  Sex: Female

DRUGS (6)
  1. LEVETIRACETAM [Suspect]
     Indication: EPILEPSY
     Dosage: 1500 MG /D PO
     Route: 048
  2. LEVETIRACETAM [Suspect]
     Indication: EPILEPSY
     Dosage: 3000 MG /D PO
     Route: 048
  3. LEVETIRACETAM [Suspect]
     Indication: EPILEPSY
     Dosage: 4000 MG /D PO
     Route: 048
  4. LEVETIRACETAM [Suspect]
     Indication: EPILEPSY
     Dosage: 2500 MG /D PO
     Route: 048
  5. PHENYTOIN [Concomitant]
  6. CLONAZEPAM [Concomitant]

REACTIONS (9)
  - ABORTION INDUCED [None]
  - ANXIETY [None]
  - CONVULSION [None]
  - DRUG EXPOSURE DURING PREGNANCY [None]
  - DRUG LEVEL DECREASED [None]
  - LOGORRHOEA [None]
  - PREGNANCY ON ORAL CONTRACEPTIVE [None]
  - PSYCHOMOTOR HYPERACTIVITY [None]
  - STRESS [None]
